FAERS Safety Report 5247800-6 (Version None)
Quarter: 2007Q1

REPORT INFORMATION
  Report Type: 
  Country: None (occurrence: None)
  Receive Date: 20061201
  Receipt Date: 20060814
  Transmission Date: 20070707
  Serious: No
  Sender: FDA-Public Use
  Company Number: 2006PV019435

PATIENT
  Age: 59 Year
  Sex: Female
  Weight: 104.3273 kg

DRUGS (8)
  1. BYETTA [Suspect]
     Indication: DIABETES MELLITUS NON-INSULIN-DEPENDENT
     Dosage: 5 MCG; QD; SC
     Route: 058
     Dates: start: 20060619, end: 20060701
  2. BYETTA [Suspect]
     Indication: DIABETES MELLITUS NON-INSULIN-DEPENDENT
     Dosage: 5 MCG; QD; SC
     Route: 058
     Dates: start: 20060726
  3. METFORMIN HCL [Concomitant]
  4. AVANDIA [Concomitant]
  5. LANTUS [Concomitant]
  6. PRILOSEC [Concomitant]
  7. GLUCOTROL XL [Concomitant]
  8. GLUCOTROL [Concomitant]

REACTIONS (5)
  - BLOOD GLUCOSE INCREASED [None]
  - DECREASED APPETITE [None]
  - INCREASED APPETITE [None]
  - NAUSEA [None]
  - WEIGHT DECREASED [None]
